FAERS Safety Report 5418477-1 (Version None)
Quarter: 2007Q3

REPORT INFORMATION
  Report Type: 
  Country: None (occurrence: None)
  Receive Date: 20070718
  Receipt Date: 20060726
  Transmission Date: 20080115
  Serious: Yes (Death)
  Sender: FDA-Public Use
  Company Number: 2006093201

PATIENT
  Age: 56 Year
  Sex: Male
  Weight: 72.1219 kg

DRUGS (2)
  1. CELEBREX [Suspect]
     Indication: ARTHRITIS
     Dosage: 400 MG (200 MG, 2 IN 1 D)
     Dates: start: 20031105
  2. BEXTRA [Concomitant]

REACTIONS (1)
  - MYOCARDIAL INFARCTION [None]
